FAERS Safety Report 17142078 (Version 1)
Quarter: 2019Q4

REPORT INFORMATION
  Report Type: Report from Study
  Country: GB (occurrence: GB)
  Receive Date: 20191211
  Receipt Date: 20191211
  Transmission Date: 20200122
  Serious: Yes (Other)
  Sender: FDA-Public Use
  Company Number: GB-JNJFOC-20191201450

PATIENT
  Age: 79 Year
  Sex: Female
  Weight: 56.9 kg

DRUGS (1)
  1. STELARA [Suspect]
     Active Substance: USTEKINUMAB
     Indication: PSORIASIS
     Route: 058
     Dates: start: 20150924, end: 20180523

REACTIONS (1)
  - Basal cell carcinoma [Not Recovered/Not Resolved]

NARRATIVE: CASE EVENT DATE: 20190905
